FAERS Safety Report 9914394 (Version 1)
Quarter: 2014Q1

REPORT INFORMATION
  Report Type: Spontaneous
  Country: US (occurrence: None)
  Receive Date: 20140219
  Receipt Date: 20140219
  Transmission Date: 20141002
  Serious: No
  Sender: FDA-Public Use
  Company Number: None

PATIENT
  Age: 46 Year
  Sex: Female
  Weight: 72.58 kg

DRUGS (1)
  1. DULOXETINE [Suspect]
     Indication: BIPOLAR DISORDER
     Dosage: TAKEN BY MOUTH
     Dates: start: 20140103, end: 20140213

REACTIONS (6)
  - Palpitations [None]
  - Heart rate increased [None]
  - Tremor [None]
  - Dizziness [None]
  - Vomiting [None]
  - Vertigo [None]
